FAERS Safety Report 12365853 (Version 3)
Quarter: 2017Q3

REPORT INFORMATION
  Report Type: Report from Study
  Country: BR (occurrence: BR)
  Receive Date: 20160513
  Receipt Date: 20170920
  Transmission Date: 20171127
  Serious: Yes (Hospitalization)
  Sender: FDA-Public Use
  Company Number: BR-BRISTOL-MYERS SQUIBB COMPANY-BMS-2016-035820

PATIENT
  Age: 51 Year
  Sex: Female

DRUGS (5)
  1. ROSUVASTATINE [Concomitant]
     Active Substance: ROSUVASTATIN
     Indication: PRODUCT USED FOR UNKNOWN INDICATION
     Dosage: UNK
     Route: 065
  2. ABATACEPT [Suspect]
     Active Substance: ABATACEPT
     Indication: RHEUMATOID ARTHRITIS
     Dosage: 1 DF, QMO (250 MG)
     Route: 042
     Dates: start: 201503
  3. PREDNISONE. [Concomitant]
     Active Substance: PREDNISONE
     Indication: PRODUCT USED FOR UNKNOWN INDICATION
     Dosage: UNK
     Route: 065
  4. AMITRIPTYLINE [Concomitant]
     Active Substance: AMITRIPTYLINE
     Indication: PRODUCT USED FOR UNKNOWN INDICATION
     Dosage: UNK
     Route: 065
  5. SULFASALAZINE. [Concomitant]
     Active Substance: SULFASALAZINE
     Indication: PRODUCT USED FOR UNKNOWN INDICATION
     Dosage: UNK
     Route: 065

REACTIONS (10)
  - Hypotension [Unknown]
  - Weight increased [Unknown]
  - Renal disorder [Unknown]
  - Spinal disorder [Unknown]
  - Aspartate aminotransferase abnormal [Unknown]
  - Splenomegaly [Unknown]
  - Hepatic steatosis [Unknown]
  - Intervertebral disc protrusion [Unknown]
  - Alanine aminotransferase abnormal [Unknown]
  - Proctitis [Unknown]

NARRATIVE: CASE EVENT DATE: 20160410
